FAERS Safety Report 6115132-X (Version None)
Quarter: 2009Q1

REPORT INFORMATION
  Report Type: 
  Country: None (occurrence: None)
  Receive Date: 20090313
  Receipt Date: 20090303
  Transmission Date: 20090719
  Serious: Yes (Other)
  Sender: FDA-Public Use
  Company Number: IE-PFIZER INC-2009164292

PATIENT

DRUGS (2)
  1. CABASER [Suspect]
     Dosage: 6 MG, UNK
     Route: 048
     Dates: start: 20020101, end: 20090122
  2. SINEMET CR [Suspect]

REACTIONS (4)
  - DELUSION [None]
  - IMPULSIVE BEHAVIOUR [None]
  - PARANOIA [None]
  - SEXUAL DYSFUNCTION [None]
